FAERS Safety Report 9326190 (Version 1)
Quarter: 2013Q2

REPORT INFORMATION
  Report Type: Spontaneous
  Country: US (occurrence: US)
  Receive Date: 20130604
  Receipt Date: 20130604
  Transmission Date: 20140414
  Serious: Yes (Death, Congenital Anomaly)
  Sender: FDA-Public Use
  Company Number: US-FRI-1000045583

PATIENT
  Age: 0 Day
  Sex: Male

DRUGS (2)
  1. LEXAPRO [Suspect]
     Indication: DEPRESSION
     Route: 064
     Dates: start: 201002, end: 20100505
  2. LEXAPRO [Suspect]
     Indication: ANXIETY

REACTIONS (1)
  - Persistent foetal circulation [Fatal]
